FAERS Safety Report 9518213 (Version 1)
Quarter: 2013Q3

REPORT INFORMATION
  Report Type: Spontaneous
  Country: US (occurrence: US)
  Receive Date: 20130912
  Receipt Date: 20130912
  Transmission Date: 20140515
  Serious: Yes (Other)
  Sender: FDA-Public Use
  Company Number: US-JNJFOC-20130901351

PATIENT
  Age: 51 Year
  Sex: Male
  Weight: 98.88 kg

DRUGS (4)
  1. REMICADE [Suspect]
     Indication: PSORIATIC ARTHROPATHY
     Route: 042
     Dates: start: 20130305
  2. REMICADE [Suspect]
     Indication: PSORIATIC ARTHROPATHY
     Route: 042
     Dates: start: 201306
  3. METHOTREXATE [Concomitant]
     Indication: PSORIATIC ARTHROPATHY
     Route: 048
     Dates: start: 201210
  4. FOLIC ACID [Concomitant]
     Indication: PSORIATIC ARTHROPATHY
     Route: 048

REACTIONS (7)
  - Uveitis [Recovered/Resolved]
  - Psoriatic arthropathy [Recovering/Resolving]
  - Tinea pedis [Recovering/Resolving]
  - Impaired driving ability [Not Recovered/Not Resolved]
  - Eye infection [Recovered/Resolved]
  - Pharyngitis streptococcal [Recovered/Resolved]
  - Herpes zoster [Recovered/Resolved]
